FAERS Safety Report 21329895 (Version 1)
Quarter: 2022Q3

REPORT INFORMATION
  Report Type: Spontaneous
  Country: US (occurrence: None)
  Receive Date: 20220913
  Receipt Date: 20220913
  Transmission Date: 20221026
  Serious: Yes (Hospitalization)
  Sender: FDA-Public Use
  Company Number: None

PATIENT
  Age: 61 Year
  Sex: Female
  Weight: 142 kg

DRUGS (3)
  1. OZEMPIC [Suspect]
     Active Substance: SEMAGLUTIDE
     Indication: Obesity
     Dosage: OTHER FREQUENCY : 8/20/2022;?
     Route: 058
     Dates: start: 20220501, end: 20220823
  2. LEVOTHYROXINE [Concomitant]
     Active Substance: LEVOTHYROXINE
  3. VITAMIN D [Concomitant]
     Active Substance: VITAMIN D NOS

REACTIONS (1)
  - Pancreatitis [None]

NARRATIVE: CASE EVENT DATE: 20220819
